FAERS Safety Report 5024226-1 (Version None)
Quarter: 2006Q2

REPORT INFORMATION
  Report Type: 
  Country: None (occurrence: None)
  Receive Date: 20060607
  Receipt Date: 20060603
  Transmission Date: 20061013
  Serious: Yes (Other)
  Sender: FDA-Public Use
  Company Number: 221451

PATIENT
  Age: 55 Year
  Sex: Male

DRUGS (7)
  1. AVASTIN [Suspect]
     Indication: COLON CANCER
  2. IRINOTECAN HCL [Concomitant]
  3. FLUOROURACIL [Concomitant]
  4. LEUCOVORIN CALCIUM [Concomitant]
  5. PRIMPERAN ELIXIR [Concomitant]
  6. ZOFRAN [Concomitant]
  7. DEXAMETHASONE [Concomitant]

REACTIONS (3)
  - DRUG INTOLERANCE [None]
  - EPISTAXIS [None]
  - NASAL SEPTUM PERFORATION [None]
